FAERS Safety Report 8118951-3 (Version None)
Quarter: 2012Q1

REPORT INFORMATION
  Report Type: 
  Country: None (occurrence: None)
  Receive Date: 20120207
  Receipt Date: 20120203
  Transmission Date: 20120608
  Serious: Yes (Other)
  Sender: FDA-Public Use
  Company Number: US-PFIZER INC-2012013632

PATIENT
  Sex: Female
  Weight: 68.027 kg

DRUGS (5)
  1. LIPITOR [Suspect]
     Dosage: 80 MG, 1X/DAY
     Route: 048
  2. MYCOPHENOLATE MOFETIL (CELLCEPT) [Suspect]
     Indication: CARDIAC DISORDER
     Dosage: (TWO 250MG CAPSULES) 500 MG, 2X/DAY
     Route: 048
     Dates: start: 19920706
  3. LIPITOR [Suspect]
     Indication: BLOOD CHOLESTEROL INCREASED
     Dosage: UNK, 1X/DAY
     Route: 048
  4. NEORAL [Suspect]
     Indication: CARDIAC DISORDER
     Dosage: 125 MG, 2X/DAY
     Route: 048
     Dates: start: 19920706
  5. CYCLOSPORINE [Suspect]
     Indication: CARDIAC DISORDER
     Dosage: 175 MG, 1X/DAY
     Route: 048
     Dates: start: 19920706

REACTIONS (2)
  - BLOOD CHOLESTEROL INCREASED [None]
  - HYPERTENSION [None]
